FAERS Safety Report 8215939 (Version 2)
Quarter: 2014Q1

REPORT INFORMATION
  Report Type: Spontaneous
  Country: US (occurrence: US)
  Receive Date: 20111031
  Receipt Date: 20140127
  Transmission Date: 20141002
  Serious: Yes (Other)
  Sender: FDA-Public Use
  Company Number: US-BAYER-2011-102981

PATIENT
  Age: 27 Year
  Sex: Female

DRUGS (4)
  1. YAZ [Suspect]
     Dosage: UNK
     Dates: start: 20071216
  2. PROTONIX [Concomitant]
  3. ZANTAC [Concomitant]
  4. ZYRTEC [Concomitant]

REACTIONS (6)
  - Cholecystectomy [None]
  - Nephrolithiasis [None]
  - Cholecystitis chronic [None]
  - Biliary dyskinesia [None]
  - Injury [None]
  - Pain [None]
